FAERS Safety Report 12107385 (Version 2)
Quarter: 2016Q2

REPORT INFORMATION
  Report Type: Report from Study
  Country: US (occurrence: US)
  Receive Date: 20160223
  Receipt Date: 20160420
  Transmission Date: 20160815
  Serious: Yes (Other)
  Sender: FDA-Public Use
  Company Number: US-ROCHE-1714242

PATIENT
  Age: 86 Year
  Sex: Female
  Weight: 59.02 kg

DRUGS (4)
  1. RITUXAN [Suspect]
     Active Substance: RITUXIMAB
     Indication: NON-HODGKIN^S LYMPHOMA
     Route: 065
     Dates: end: 2005
  2. TARCEVA [Suspect]
     Active Substance: ERLOTINIB HYDROCHLORIDE
     Indication: LUNG NEOPLASM MALIGNANT
     Route: 048
     Dates: start: 201601
  3. COUMADIN [Concomitant]
     Active Substance: WARFARIN SODIUM
     Indication: ATRIAL FIBRILLATION
  4. ZITHROMAX [Concomitant]
     Active Substance: AZITHROMYCIN DIHYDRATE
     Indication: PULMONARY CONGESTION

REACTIONS (16)
  - Body temperature increased [Unknown]
  - Thyroid cancer [Not Recovered/Not Resolved]
  - Upper respiratory tract infection [Unknown]
  - Dry skin [Not Recovered/Not Resolved]
  - Rhinorrhoea [Not Recovered/Not Resolved]
  - Skin fissures [Unknown]
  - Dermatitis acneiform [Not Recovered/Not Resolved]
  - Pulmonary mass [Unknown]
  - Visual impairment [Not Recovered/Not Resolved]
  - Ulcer [Unknown]
  - Acne [Not Recovered/Not Resolved]
  - Reading disorder [Not Recovered/Not Resolved]
  - Rash [Not Recovered/Not Resolved]
  - Erythema [Not Recovered/Not Resolved]
  - Pulmonary congestion [Unknown]
  - Conjunctivitis [Not Recovered/Not Resolved]

NARRATIVE: CASE EVENT DATE: 201604
